FAERS Safety Report 5157546-0 (Version None)
Quarter: 2006Q4

REPORT INFORMATION
  Report Type: 
  Country: None (occurrence: None)
  Receive Date: 20061127
  Receipt Date: 20061113
  Transmission Date: 20070319
  Serious: Yes (Other)
  Sender: FDA-Public Use
  Company Number: FR-GLAXOSMITHKLINE-B0447667A

PATIENT
  Age: 75 Year
  Sex: Female

DRUGS (4)
  1. DEROXAT [Suspect]
     Indication: FATIGUE
     Dosage: 10MG PER DAY
     Route: 048
     Dates: start: 20061110
  2. COUMADIN [Suspect]
     Indication: PULMONARY EMBOLISM
     Dates: start: 20060201
  3. LEVOTHYROXINE SODIUM [Concomitant]
  4. LEXOMIL [Concomitant]
     Dosage: .5UNIT PER DAY
     Route: 048

REACTIONS (2)
  - BLEEDING TIME PROLONGED [None]
  - DRUG INTERACTION [None]
